FAERS Safety Report 4404555-2 (Version None)
Quarter: 2004Q3

REPORT INFORMATION
  Report Type: 
  Country: None (occurrence: None)
  Receive Date: 20040722
  Receipt Date: 20040716
  Transmission Date: 20050211
  Serious: Yes (Hospitalization)
  Sender: FDA-Public Use
  Company Number: 200412731FR

PATIENT
  Age: 79 Year
  Sex: Female

DRUGS (6)
  1. FLAGYL [Suspect]
     Route: 042
  2. OFLOCET [Suspect]
     Route: 042
  3. ROCEPHIN [Suspect]
     Route: 042
  4. ZOVIRAX [Suspect]
     Route: 042
  5. MEDROL [Concomitant]
     Route: 048
     Dates: start: 20020615, end: 20031130
  6. CARYOLYSINE [Concomitant]
     Route: 042

REACTIONS (7)
  - ASPARTATE AMINOTRANSFERASE INCREASED [None]
  - BLOOD CREATININE INCREASED [None]
  - INFLAMMATION [None]
  - LEUKOPENIA [None]
  - LYMPHOMA [None]
  - PLEURAL DISORDER [None]
  - THROMBOCYTOPENIA [None]
